FAERS Safety Report 23335661 (Version 1)
Quarter: 2023Q4

REPORT INFORMATION
  Report Type: Spontaneous
  Country: CA (occurrence: CA)
  Receive Date: 20231225
  Receipt Date: 20231225
  Transmission Date: 20240109
  Serious: Yes (Other)
  Sender: FDA-Public Use
  Company Number: None

PATIENT
  Age: 61 Year
  Sex: Female

DRUGS (2)
  1. METHOTREXATE [Suspect]
     Active Substance: METHOTREXATE
     Indication: Product used for unknown indication
     Dosage: 1 EVERY 1 WEEKS
     Route: 058
  2. TOFACITINIB [Concomitant]
     Active Substance: TOFACITINIB
     Indication: Psoriatic arthropathy
     Dosage: 2 EVERY 1 DAYS
     Route: 048

REACTIONS (1)
  - Psoriatic arthropathy [Unknown]
